FAERS Safety Report 8770565 (Version 1)
Quarter: 2012Q4

REPORT INFORMATION
  Report Type: 
  Country: US (occurrence: US)
  Receive Date: 20120906
  Receipt Date: 20120906
  Transmission Date: 20130627
  Serious: Yes (Hospitalization)
  Sender: FDA-Public Use
  Company Number: US-BAYER-2012-091635

PATIENT
  Age: 30 Year
  Sex: Female
  Weight: 106.5 kg

DRUGS (12)
  1. YASMIN [Suspect]
  2. LEVOXYL [Concomitant]
     Dosage: 300 ?g, UNK
     Dates: start: 20020411, end: 20020529
  3. LEVOXYL [Concomitant]
     Dosage: 0.3 mg,per day
     Dates: start: 20020411, end: 20020529
  4. NEURONTIN [Concomitant]
     Dosage: 600 mg, BID (interpreted as three times a day)
  5. ULTRAM [Concomitant]
     Dosage: 50 mg, 1 to 1 times per day
  6. VICODIN [Concomitant]
     Dosage: 5/325 as needed
  7. ALBUTEROL [Concomitant]
     Dosage: UNK UNK, PRN
  8. PAXIL [Concomitant]
  9. MORPHINE [Concomitant]
  10. PHENERGAN [Concomitant]
  11. OXYCONTIN [Concomitant]
  12. LORTAB [Concomitant]

REACTIONS (1)
  - Pulmonary embolism [None]
